FAERS Safety Report 6050680-2 (Version None)
Quarter: 2009Q1

REPORT INFORMATION
  Report Type: 
  Country: None (occurrence: None)
  Receive Date: 20090121
  Receipt Date: 20090121
  Transmission Date: 20090719
  Serious: Yes (Disabling, Other)
  Sender: FDA-Public Use
  Company Number: None

PATIENT
  Age: 60 Year
  Sex: Male
  Weight: 86.1834 kg

DRUGS (4)
  1. LORTAB [Suspect]
     Indication: BLOOD CHOLESTEROL INCREASED
     Dates: start: 19950423, end: 20050423
  2. LORTAB [Suspect]
     Indication: NECK PAIN
     Dates: start: 19950423, end: 20050423
  3. LORTAB [Suspect]
     Indication: BLOOD CHOLESTEROL INCREASED
     Dates: start: 20010423, end: 20080107
  4. LORTAB [Suspect]
     Indication: NECK PAIN
     Dates: start: 20010423, end: 20080107

REACTIONS (7)
  - ARTHRALGIA [None]
  - BACK PAIN [None]
  - BLOOD CHOLESTEROL ABNORMAL [None]
  - DRUG HYPERSENSITIVITY [None]
  - NEPHROLITHIASIS [None]
  - PAIN [None]
  - PAIN IN EXTREMITY [None]
